FAERS Safety Report 18715838 (Version 10)
Quarter: 2022Q1

REPORT INFORMATION
  Report Type: Report from Study
  Country: US (occurrence: US)
  Receive Date: 20210108
  Receipt Date: 20220111
  Transmission Date: 20220423
  Serious: Yes (Other)
  Sender: FDA-Public Use
  Company Number: NVSC2021US003389

PATIENT
  Sex: Male

DRUGS (2)
  1. ENTRESTO [Suspect]
     Active Substance: SACUBITRIL\VALSARTAN
     Indication: Left ventricular failure
     Dosage: 1 DOSAGE FORM, BID
     Route: 048
     Dates: start: 20201120
  2. ENTRESTO [Suspect]
     Active Substance: SACUBITRIL\VALSARTAN
     Indication: Cardiomyopathy
     Dosage: 1 DOSAGE FORM, BID
     Route: 048

REACTIONS (10)
  - Parkinson^s disease [Unknown]
  - Asthenia [Unknown]
  - Balance disorder [Unknown]
  - Insomnia [Unknown]
  - Memory impairment [Unknown]
  - Visual impairment [Unknown]
  - Malaise [Unknown]
  - Dysphagia [Unknown]
  - Vocal cord paralysis [Unknown]
  - Product dose omission issue [Unknown]
